FAERS Safety Report 13922633 (Version 1)
Quarter: 2017Q3

REPORT INFORMATION
  Report Type: Spontaneous
  Country: US (occurrence: US)
  Receive Date: 20170830
  Receipt Date: 20170830
  Transmission Date: 20171127
  Serious: No
  Sender: FDA-Public Use
  Company Number: US-UPSHER-SMITH LABORATORIES, INC.-2017USL00109

PATIENT
  Age: 83 Year
  Sex: Female
  Weight: 54.42 kg

DRUGS (7)
  1. METOPROLOL. [Concomitant]
     Active Substance: METOPROLOL
     Dosage: 50 MG, 2X/DAY
  2. DIGOXIN. [Concomitant]
     Active Substance: DIGOXIN
     Dosage: 125 ?G, 1X/DAY
  3. LISINOPRIL. [Concomitant]
     Active Substance: LISINOPRIL
     Dosage: 15 MG, 1X/DAY
  4. ELIQUIS [Concomitant]
     Active Substance: APIXABAN
     Dosage: 5 MG, 1X/DAY
  5. LEVOTHYROXINE. [Concomitant]
     Active Substance: LEVOTHYROXINE
     Dosage: 75 ?G, 1X/DAY
  6. OXYBUTYNIN CHLORIDE. [Suspect]
     Active Substance: OXYBUTYNIN CHLORIDE
     Indication: URINARY INCONTINENCE
     Dosage: 5 MG, 1X/DAY
     Route: 048
     Dates: start: 201705, end: 201706
  7. ROSUVASTATIN. [Concomitant]
     Active Substance: ROSUVASTATIN
     Dosage: 10 MG, 1X/DAY

REACTIONS (2)
  - Drug ineffective [Recovered/Resolved]
  - Urinary incontinence [Recovered/Resolved]

NARRATIVE: CASE EVENT DATE: 201706
